FAERS Safety Report 5532068-3 (Version None)
Quarter: 2007Q4

REPORT INFORMATION
  Report Type: 
  Country: None (occurrence: None)
  Receive Date: 20071203
  Receipt Date: 20071120
  Transmission Date: 20080405
  Serious: Yes (Hospitalization)
  Sender: FDA-Public Use
  Company Number: B0497283A

PATIENT
  Age: 83 Year
  Sex: Female

DRUGS (5)
  1. DEROXAT [Suspect]
     Dosage: 40MG PER DAY
     Route: 048
     Dates: start: 20070101, end: 20071101
  2. MORPHINE [Suspect]
     Route: 042
     Dates: start: 20071101, end: 20071101
  3. HEPARIN [Concomitant]
  4. IMOVANE [Concomitant]
  5. VOGALENE [Concomitant]

REACTIONS (7)
  - ANAEMIA [None]
  - CONFUSIONAL STATE [None]
  - DRUG INTERACTION [None]
  - HALLUCINATION [None]
  - POST PROCEDURAL HAEMATOMA [None]
  - PSYCHOMOTOR HYPERACTIVITY [None]
  - TRANCE [None]
